FAERS Safety Report 4821352-4 (Version None)
Quarter: 2005Q4

REPORT INFORMATION
  Report Type: 
  Country: None (occurrence: None)
  Receive Date: 20051107
  Receipt Date: 20050927
  Transmission Date: 20060501
  Serious: No
  Sender: FDA-Public Use
  Company Number: US-GLAXOSMITHKLINE-A0576300A

PATIENT
  Age: 48 Year
  Sex: Female

DRUGS (2)
  1. AVANDAMET [Suspect]
     Route: 048
     Dates: start: 20050924
  2. NO CONCURRENT MEDICATION [Concomitant]

REACTIONS (1)
  - POLLAKIURIA [None]
